FAERS Safety Report 23866538 (Version 1)
Quarter: 2024Q2

REPORT INFORMATION
  Report Type: Report from Study
  Country: GB (occurrence: GB)
  Receive Date: 20240517
  Receipt Date: 20240517
  Transmission Date: 20240716
  Serious: Yes (Other)
  Sender: FDA-Public Use
  Company Number: GB-ARGENX-2023-ARGX-GB003264

PATIENT

DRUGS (2)
  1. VYVGART [Suspect]
     Active Substance: EFGARTIGIMOD ALFA-FCAB
     Indication: Muscular weakness
     Dosage: UNK
     Route: 065
  2. VYVGART [Suspect]
     Active Substance: EFGARTIGIMOD ALFA-FCAB
     Dosage: 700 MG
     Route: 065

REACTIONS (10)
  - Myasthenia gravis [Unknown]
  - Memory impairment [Unknown]
  - Alopecia [Unknown]
  - Myasthenia gravis [Unknown]
  - Poor venous access [Unknown]
  - Poor venous access [Unknown]
  - Dysstasia [Unknown]
  - Myasthenia gravis [Unknown]
  - Arthralgia [Unknown]
  - Hypokinesia [Unknown]

NARRATIVE: CASE EVENT DATE: 20230925
